FAERS Safety Report 20590552 (Version 1)
Quarter: 2022Q1

REPORT INFORMATION
  Report Type: Other
  Country: US (occurrence: None)
  Receive Date: 20220314
  Receipt Date: 20220314
  Transmission Date: 20220424
  Serious: Yes (Other)
  Sender: FDA-Public Use
  Company Number: US-ROCHE-2875717

PATIENT
  Sex: Male

DRUGS (2)
  1. VALCYTE [Suspect]
     Active Substance: VALGANCICLOVIR HYDROCHLORIDE
     Indication: Liver transplant
     Dosage: MOST RECENT DOSE OF VALCYTE ON 20/JUL/2021.
     Route: 048
  2. VALCYTE [Suspect]
     Active Substance: VALGANCICLOVIR HYDROCHLORIDE
     Dosage: 2 TABS BID
     Route: 048

REACTIONS (2)
  - Off label use [Unknown]
  - Cytomegalovirus test positive [Unknown]
